FAERS Safety Report 9507588 (Version 2)
Quarter: 2013Q3

REPORT INFORMATION
  Report Type: Report from Study
  Country: US (occurrence: US)
  Receive Date: 20130909
  Receipt Date: 20130919
  Transmission Date: 20140515
  Serious: Yes (Congenital Anomaly)
  Sender: FDA-Public Use
  Company Number: US-UCBSA-096781

PATIENT
  Age: 0 Year
  Sex: Male
  Weight: 3.1 kg

DRUGS (14)
  1. CIMZIA [Suspect]
     Indication: CROHN^S DISEASE
     Route: 064
     Dates: start: 201205, end: 20121021
  2. CIMZIA [Suspect]
     Indication: CROHN^S DISEASE
     Route: 064
     Dates: start: 20121202, end: 20121202
  3. CIMZIA [Suspect]
     Indication: CROHN^S DISEASE
     Route: 064
     Dates: start: 20130113, end: 20130113
  4. PRENATAL VITAMINS [Concomitant]
     Dosage: DOSE : 1 PILL
     Route: 064
     Dates: start: 201206, end: 20130221
  5. FOLIC ACID [Concomitant]
     Route: 064
     Dates: start: 201206, end: 20120827
  6. FISH OIL [Concomitant]
     Dosage: DOSE : 1 PILL
     Route: 064
     Dates: start: 201206, end: 20130221
  7. TYLENOL EXTRA STRENGH [Concomitant]
     Route: 064
     Dates: start: 20120617, end: 20120617
  8. ZANTAC [Concomitant]
     Dosage: DOSE : 1 PILL
     Route: 064
     Dates: start: 20120619, end: 20120619
  9. TUMS [Concomitant]
     Dosage: DOSE : 1 PILL
     Route: 064
     Dates: start: 20120619, end: 20120619
  10. TUMS [Concomitant]
     Dosage: AS REQUIRED
     Route: 064
     Dates: start: 20121017, end: 20121201
  11. TUMS [Concomitant]
     Dosage: AS REQUIRED
     Route: 064
     Dates: start: 20121201, end: 20130131
  12. FLU VACCINE NOS [Concomitant]
     Dosage: DOSE : 1 SHOT
     Route: 064
     Dates: start: 20120925, end: 20120925
  13. BABY ASPIRIN [Concomitant]
     Route: 064
     Dates: start: 20120827, end: 20130221
  14. LABETALOL [Concomitant]
     Route: 064
     Dates: start: 20130220, end: 20130221

REACTIONS (3)
  - Pyloric stenosis [Unknown]
  - Pyrexia [Unknown]
  - Foetal exposure during pregnancy [Recovered/Resolved]
